FAERS Safety Report 14346946 (Version 1)
Quarter: 2018Q1

REPORT INFORMATION
  Report Type: Spontaneous
  Country: US (occurrence: US)
  Receive Date: 20180103
  Receipt Date: 20180103
  Transmission Date: 20180509
  Serious: No
  Sender: FDA-Public Use
  Company Number: US-PFIZER INC-2018000706

PATIENT
  Age: 55 Year
  Sex: Female

DRUGS (1)
  1. IBRANCE [Suspect]
     Active Substance: PALBOCICLIB
     Indication: NEOPLASM MALIGNANT
     Dosage: 1 DF, CYCLIC (1 CAPSULE BY MOUTH EVERY DAY ON D1-D21 FOR 28 DAY CYCLE)
     Route: 048
     Dates: start: 201704

REACTIONS (1)
  - Gingival discomfort [Unknown]

NARRATIVE: CASE EVENT DATE: 2017
